FAERS Safety Report 11815473 (Version 1)
Quarter: 2015Q4

REPORT INFORMATION
  Report Type: Spontaneous
  Country: GB (occurrence: AE)
  Receive Date: 20151209
  Receipt Date: 20151209
  Transmission Date: 20160305
  Serious: Yes (Other)
  Sender: FDA-Public Use
  Company Number: GB-MYLANLABS-2014S1010051

PATIENT

DRUGS (5)
  1. MERCAPTAMINE [Suspect]
     Active Substance: CYSTEAMINE
     Dosage: 90MG/KG
     Dates: start: 20140214
  2. INDOMETACINE [Concomitant]
     Active Substance: INDOMETHACIN
     Dosage: 22 MG,QD
  3. MERCAPTAMINE [Suspect]
     Active Substance: CYSTEAMINE
     Indication: CYSTINOSIS
     Dosage: 200 MG,QD
     Route: 050
     Dates: start: 201308, end: 20140213
  4. ALFACALCIDOL [Concomitant]
     Active Substance: ALFACALCIDOL
     Dosage: 1 MG,QD
  5. PHOSPHATE SANDOZ [Concomitant]
     Dosage: 16 MMOL,QD

REACTIONS (3)
  - Drug ineffective [Recovered/Resolved]
  - Incorrect route of drug administration [Not Recovered/Not Resolved]
  - White blood cell disorder [Recovered/Resolved]

NARRATIVE: CASE EVENT DATE: 20140213
